FAERS Safety Report 15014206 (Version 1)
Quarter: 2018Q2

REPORT INFORMATION
  Report Type: Report from Study
  Country: NL (occurrence: NL)
  Receive Date: 20180615
  Receipt Date: 20180615
  Transmission Date: 20180711
  Serious: Yes (Other)
  Sender: FDA-Public Use
  Company Number: NL-SUN PHARMACEUTICAL INDUSTRIES LTD-2018RR-175753

PATIENT
  Age: 66 Year
  Sex: Female

DRUGS (2)
  1. OXALIPLATIN. [Suspect]
     Active Substance: OXALIPLATIN
     Indication: CHEMOTHERAPY
     Dosage: 130 MG/M2, UNK
     Route: 065
  2. CAPECITABINE. [Suspect]
     Active Substance: CAPECITABINE
     Indication: CHEMOTHERAPY
     Dosage: 1800 MG, BID, 8 CYCLES, 56 DAYS AFTER THE LIVER RESECTION, DRUG DOSE DECREASED AFTER CYCLE C3 AND C7
     Route: 065

REACTIONS (17)
  - Nausea [Unknown]
  - Neuropathy peripheral [Unknown]
  - Libido disorder [Unknown]
  - Lacrimation increased [Unknown]
  - Injection site reaction [Unknown]
  - Dyspepsia [Unknown]
  - Mucosal inflammation [Unknown]
  - Myopathy [Unknown]
  - Vomiting [Unknown]
  - Abdominal pain [Unknown]
  - Diarrhoea [Unknown]
  - Flatulence [Unknown]
  - Dizziness [Unknown]
  - Fatigue [Unknown]
  - Palmar-plantar erythrodysaesthesia syndrome [Unknown]
  - Decreased appetite [Unknown]
  - Hyperglycaemia [Unknown]
